FAERS Safety Report 5863068-1 (Version None)
Quarter: 2008Q3

REPORT INFORMATION
  Report Type: 
  Country: None (occurrence: None)
  Receive Date: 20080818
  Receipt Date: 20080428
  Transmission Date: 20090109
  Serious: No
  Sender: FDA-Public Use
  Company Number: WAES 0804USA06226

PATIENT
  Age: 76 Year
  Sex: Male

DRUGS (2)
  1. JANUVIA [Suspect]
     Indication: BLOOD GLUCOSE
     Dosage: 50 MG/DAILY/PO
     Route: 048
  2. INSULIN [Concomitant]

REACTIONS (1)
  - DIARRHOEA [None]
